FAERS Safety Report 18592884 (Version 2)
Quarter: 2021Q1

REPORT INFORMATION
  Report Type: Spontaneous
  Country: CH (occurrence: CH)
  Receive Date: 20201208
  Receipt Date: 20210126
  Transmission Date: 20210419
  Serious: Yes (Other)
  Sender: FDA-Public Use
  Company Number: CH-BAUSCH-BL-2020-035696

PATIENT
  Age: 71 Year
  Sex: Female

DRUGS (5)
  1. COVERSUM [Concomitant]
     Active Substance: PERINDOPRIL
     Indication: PRODUCT USED FOR UNKNOWN INDICATION
     Dosage: 5/1.25 (UNSPECIFIED UNITS)
  2. MOTILIUM [Suspect]
     Active Substance: DOMPERIDONE
     Indication: BOWEL PREPARATION
     Dosage: ABOUT 5:30 PM
     Route: 048
     Dates: start: 20201118
  3. PLENVU [Suspect]
     Active Substance: ASCORBIC ACID\POLYETHYLENE GLYCOL 3350\POTASSIUM CHLORIDE\SODIUM ASCORBATE\SODIUM CHLORIDE\SODIUM SULFATE
     Indication: BOWEL PREPARATION
     Dosage: 1 SACHET, ABOUT 6:00 PM INTAKE
     Route: 048
     Dates: start: 20201118, end: 20201118
  4. PICOPREP [Suspect]
     Active Substance: ANHYDROUS CITRIC ACID\MAGNESIUM OXIDE\SODIUM PICOSULFATE
     Indication: PRODUCT USED FOR UNKNOWN INDICATION
     Dosage: 1 SACHET
     Route: 048
     Dates: start: 20201118
  5. JANUMET [Concomitant]
     Active Substance: METFORMIN HYDROCHLORIDE\SITAGLIPTIN PHOSPHATE
     Indication: PRODUCT USED FOR UNKNOWN INDICATION
     Dosage: 50/1000 MG

REACTIONS (5)
  - Blood glucose abnormal [Recovered/Resolved]
  - Myalgia [Recovered/Resolved]
  - Rash macular [Recovered/Resolved]
  - Cardiovascular disorder [Recovered/Resolved]
  - Myopathy [Recovered/Resolved]

NARRATIVE: CASE EVENT DATE: 20201118
